FAERS Safety Report 4793822-9 (Version None)
Quarter: 2005Q4

REPORT INFORMATION
  Report Type: 
  Country: None (occurrence: None)
  Receive Date: 20051011
  Receipt Date: 20051006
  Transmission Date: 20060501
  Serious: Yes (Other)
  Sender: FDA-Public Use
  Company Number: CA-SANOFI-SYNTHELABO-F01200502084

PATIENT
  Age: 50 Year
  Sex: Male
  Weight: 81.5 kg

DRUGS (4)
  1. ELOXATIN [Suspect]
     Indication: COLORECTAL CANCER
     Route: 042
     Dates: start: 20051004, end: 20051004
  2. LEUCOVORIN [Suspect]
     Indication: COLORECTAL CANCER
     Route: 042
     Dates: start: 20051004, end: 20051004
  3. DEXAMETHASONE [Concomitant]
     Dates: start: 20051004, end: 20051004
  4. ZOFRAN [Concomitant]
     Dates: start: 20051004, end: 20051004

REACTIONS (7)
  - BRADYCARDIA [None]
  - CARDIAC ARREST [None]
  - FLUSHING [None]
  - HYPERHIDROSIS [None]
  - INFUSION RELATED REACTION [None]
  - NAUSEA [None]
  - SYNCOPE VASOVAGAL [None]
